FAERS Safety Report 20031476 (Version 2)
Quarter: 2021Q4

REPORT INFORMATION
  Report Type: Report from Study
  Country: US (occurrence: US)
  Receive Date: 20211103
  Receipt Date: 20211108
  Transmission Date: 20220303
  Serious: Yes (Hospitalization)
  Sender: FDA-Public Use
  Company Number: US-ABBVIE-21K-163-4139969-00

PATIENT
  Age: 84 Year
  Sex: Female

DRUGS (1)
  1. VENCLEXTA [Suspect]
     Active Substance: VENETOCLAX
     Indication: Product used for unknown indication
     Dosage: WITH FOOD AND A FULL GLASS OF WATER AT SAME TIME
     Route: 048
     Dates: end: 20211021

REACTIONS (4)
  - Abscess [Unknown]
  - Confusional state [Unknown]
  - Dehydration [Unknown]
  - Wound [Unknown]

NARRATIVE: CASE EVENT DATE: 20211001
